FAERS Safety Report 5794791-5 (Version None)
Quarter: 2008Q2

REPORT INFORMATION
  Report Type: 
  Country: None (occurrence: None)
  Receive Date: 20080630
  Receipt Date: 20080620
  Transmission Date: 20081010
  Serious: Yes (Death, Congenital Anomaly)
  Sender: FDA-Public Use
  Company Number: A0685049A

PATIENT
  Sex: Female
  Weight: 2.5 kg

DRUGS (2)
  1. PAXIL [Suspect]
     Indication: DEPRESSION
     Dosage: 20MG PER DAY
     Dates: start: 19980615, end: 19981005
  2. VITAMIN TAB [Concomitant]
     Dates: start: 19981001, end: 19990601

REACTIONS (18)
  - AORTA HYPOPLASIA [None]
  - ARTERIAL DISORDER [None]
  - ATRIAL SEPTAL DEFECT [None]
  - BRADYCARDIA [None]
  - CARDIAC DISORDER [None]
  - COARCTATION OF THE AORTA [None]
  - CYANOSIS [None]
  - DRUG EXPOSURE DURING PREGNANCY [None]
  - EATING DISORDER [None]
  - HEART DISEASE CONGENITAL [None]
  - LEFT VENTRICULAR DYSFUNCTION [None]
  - LETHARGY [None]
  - MITRAL VALVE DISEASE [None]
  - PATENT DUCTUS ARTERIOSUS [None]
  - VENA CAVA INJURY [None]
  - VENTRICULAR HYPOPLASIA [None]
  - VENTRICULAR SEPTAL DEFECT [None]
  - WEIGHT GAIN POOR [None]
